FAERS Safety Report 23293575 (Version 2)
Quarter: 2024Q4

REPORT INFORMATION
  Report Type: Spontaneous
  Country: US (occurrence: US)
  Receive Date: 20231213
  Receipt Date: 20241213
  Transmission Date: 20250114
  Serious: No
  Sender: NOVO NORDISK
  Company Number: US-NOVOPROD-1118813

PATIENT

DRUGS (1)
  1. LEVEMIR [Suspect]
     Active Substance: INSULIN DETEMIR
     Indication: Product used for unknown indication
     Dosage: UNK
     Route: 058

REACTIONS (3)
  - Sleep disorder [Unknown]
  - Blood glucose increased [Unknown]
  - Drug ineffective [Unknown]
